FAERS Safety Report 9418720 (Version 2)
Quarter: 2013Q3

REPORT INFORMATION
  Report Type: Spontaneous
  Country: CN (occurrence: CN)
  Receive Date: 20130725
  Receipt Date: 20130815
  Transmission Date: 20140515
  Serious: Yes (Hospitalization, Other)
  Sender: FDA-Public Use
  Company Number: CN-BAYER-2013-085473

PATIENT
  Age: 41 Year
  Sex: Female

DRUGS (1)
  1. MIRENA [Suspect]
     Indication: ADENOMYOSIS
     Dosage: UNK
     Dates: start: 20130606

REACTIONS (4)
  - Metrorrhagia [Recovered/Resolved]
  - Haemoglobin decreased [Unknown]
  - Off label use [None]
  - Dysmenorrhoea [None]
